FAERS Safety Report 4574582-3 (Version None)
Quarter: 2005Q1

REPORT INFORMATION
  Report Type: 
  Country: None (occurrence: None)
  Receive Date: 20050204
  Receipt Date: 20050126
  Transmission Date: 20050727
  Serious: Yes (Other)
  Sender: FDA-Public Use
  Company Number: USA-2005-0018677

PATIENT
  Age: 68 Year
  Sex: Female

DRUGS (6)
  1. OXYCODONE HCL [Suspect]
  2. MONOPRIL [Concomitant]
  3. VIOXX [Concomitant]
  4. CITALOPRAM [Concomitant]
  5. CLONAZEPAM [Concomitant]
  6. REMERON [Concomitant]

REACTIONS (4)
  - DEPRESSION [None]
  - OEDEMA PERIPHERAL [None]
  - PAIN [None]
  - SUICIDAL IDEATION [None]
